FAERS Safety Report 8769762 (Version 3)
Quarter: 2012Q4

REPORT INFORMATION
  Report Type: 
  Country: AU (occurrence: AU)
  Receive Date: 20120905
  Receipt Date: 20121025
  Transmission Date: 20130627
  Serious: Yes (Death)
  Sender: FDA-Public Use
  Company Number: AU-009507513-1209AUS000015

PATIENT
  Age: 43 Year
  Sex: Male

DRUGS (7)
  1. REMERON [Suspect]
     Route: 048
  2. METHADONE HYDROCHLORIDE [Suspect]
  3. CHLORPROMAZINE [Suspect]
  4. DIAZEPAM [Suspect]
  5. VENLAFAXINE HYDROCHLORIDE [Suspect]
  6. DETICENE [Suspect]
  7. CYPROHEPTADINE HYDROCHLORIDE [Suspect]

REACTIONS (3)
  - Toxicity to various agents [Fatal]
  - Intentional overdose [Fatal]
  - Completed suicide [Fatal]
